FAERS Safety Report 15669194 (Version 3)
Quarter: 2018Q4

REPORT INFORMATION
  Report Type: Spontaneous
  Country: US (occurrence: US)
  Receive Date: 20181129
  Receipt Date: 20181228
  Transmission Date: 20190205
  Serious: No
  Sender: FDA-Public Use
  Company Number: US-JNJFOC-20181120454

PATIENT
  Sex: Female
  Weight: 74.48 kg

DRUGS (12)
  1. NIZORAL A-D [Suspect]
     Active Substance: KETOCONAZOLE
     Indication: HERPES ZOSTER
     Route: 061
  2. AMLODIPINE BESYLATE. [Concomitant]
     Active Substance: AMLODIPINE BESYLATE
     Route: 065
  3. METOPROLOL. [Concomitant]
     Active Substance: METOPROLOL
     Route: 065
  4. LISINOPRIL. [Concomitant]
     Active Substance: LISINOPRIL
     Route: 065
  5. OXYBUTYNIN CHLORIDE. [Concomitant]
     Active Substance: OXYBUTYNIN CHLORIDE
     Route: 065
  6. LOVASTATIN. [Concomitant]
     Active Substance: LOVASTATIN
     Route: 065
  7. NIZORAL A-D [Suspect]
     Active Substance: KETOCONAZOLE
     Indication: SEBORRHOEIC DERMATITIS
     Route: 061
  8. ASPIRIN. [Concomitant]
     Active Substance: ASPIRIN
     Route: 065
  9. GABAPENTIN. [Concomitant]
     Active Substance: GABAPENTIN
     Route: 065
  10. HYDROCHLOROTHIAZIDE. [Concomitant]
     Active Substance: HYDROCHLOROTHIAZIDE
     Route: 065
  11. NIZORAL A-D [Suspect]
     Active Substance: KETOCONAZOLE
     Indication: HERPES ZOSTER
     Route: 061
     Dates: start: 20180310, end: 20181112
  12. NIZORAL A-D [Suspect]
     Active Substance: KETOCONAZOLE
     Indication: SEBORRHOEIC DERMATITIS
     Route: 061
     Dates: start: 20180310, end: 20181112

REACTIONS (1)
  - Hair colour changes [Recovering/Resolving]
